FAERS Safety Report 8613143-3 (Version None)
Quarter: 2012Q3

REPORT INFORMATION
  Report Type: 
  Country: None (occurrence: None)
  Receive Date: 20120822
  Receipt Date: 20120816
  Transmission Date: 20120928
  Serious: Yes (Death)
  Sender: FDA-Public Use
  Company Number: JP-ALLERGAN-1116765US

PATIENT
  Age: 85 Year
  Sex: Male

DRUGS (5)
  1. ZONISAMIDE [Concomitant]
     Indication: EPILEPSY
     Dosage: 1 G, BID
     Route: 048
  2. BOTOX [Suspect]
     Indication: MUSCLE SPASMS
     Dosage: 300 UNITS, SINGLE
     Route: 030
     Dates: start: 20110914, end: 20110914
  3. MICARDIS [Concomitant]
     Indication: HYPERTENSION
     Dosage: UNK
     Route: 048
  4. FAMOSTAGINE-D [Concomitant]
     Indication: GASTRIC ULCER
     Dosage: UNK
     Route: 048
  5. FUROSEMIDE [Concomitant]
     Indication: HYPERTENSION
     Dosage: UNK
     Route: 048

REACTIONS (4)
  - ACUTE PULMONARY OEDEMA [None]
  - ECZEMA [None]
  - SKIN EXFOLIATION [None]
  - CONDITION AGGRAVATED [None]
